FAERS Safety Report 22974740 (Version 2)
Quarter: 2024Q1

REPORT INFORMATION
  Report Type: Spontaneous
  Country: BR (occurrence: BR)
  Receive Date: 20230923
  Receipt Date: 20240315
  Transmission Date: 20240410
  Serious: Yes (Other)
  Sender: FDA-Public Use
  Company Number: BR-002147023-NVSC2023BR205143

PATIENT
  Age: 63 Year
  Sex: Female
  Weight: 42 kg

DRUGS (3)
  1. COSENTYX [Suspect]
     Active Substance: SECUKINUMAB
     Indication: Ankylosing spondylitis
     Dosage: 150 MG, QMO (CONTAINED IN 1 SYRINGE)
     Route: 065
     Dates: start: 2020
  2. COSENTYX [Suspect]
     Active Substance: SECUKINUMAB
     Indication: Juvenile idiopathic arthritis
     Dosage: UNK, (150 MG ML) QMO
     Route: 065
  3. NEO-B [Concomitant]
     Indication: Product used for unknown indication
     Dosage: UNK, QD (100 MG + 100MG + 5000 MCG)
     Route: 065

REACTIONS (11)
  - Cataract [Unknown]
  - Glaucoma [Unknown]
  - Hemiplegia [Unknown]
  - Colitis [Unknown]
  - Visual impairment [Unknown]
  - Pain [Unknown]
  - Arthritis [Unknown]
  - Asthenia [Unknown]
  - COVID-19 [Unknown]
  - Weight decreased [Unknown]
  - Diarrhoea [Unknown]

NARRATIVE: CASE EVENT DATE: 20231201
